FAERS Safety Report 12716871 (Version 3)
Quarter: 2016Q4

REPORT INFORMATION
  Report Type: Spontaneous
  Country: US (occurrence: US)
  Receive Date: 20160906
  Receipt Date: 20161017
  Transmission Date: 20170207
  Serious: Yes (Hospitalization, Other)
  Sender: FDA-Public Use
  Company Number: US-SMITH AND NEPHEW, INC-2016SMT00752

PATIENT
  Age: 66 Year
  Sex: Male
  Weight: 136.5 kg

DRUGS (22)
  1. SIMVASTATIN. [Concomitant]
     Active Substance: SIMVASTATIN
     Dosage: 10 MG, 1X/DAY
  2. NOVOLIN 70/30 [Concomitant]
     Active Substance: INSULIN HUMAN
     Dosage: 45 U, 4X/DAY
     Route: 058
  3. REQUIP [Concomitant]
     Active Substance: ROPINIROLE HYDROCHLORIDE
     Dosage: 1 MG, 1X/DAY
  4. CARVEDILOL. [Suspect]
     Active Substance: CARVEDILOL
     Dosage: 12.5 MG, 1X/DAY
     Dates: end: 201603
  5. BUMEX [Concomitant]
     Active Substance: BUMETANIDE
     Dosage: 1 MG, 1X/DAY
  6. CLONAZEPAM. [Concomitant]
     Active Substance: CLONAZEPAM
     Dosage: 1 MG, 2X/DAY
  7. MS CONTIN [Concomitant]
     Active Substance: MORPHINE SULFATE
     Dosage: 15 MG, 2X/DAY
  8. TAMSULOSIN [Concomitant]
     Active Substance: TAMSULOSIN
     Dosage: 0.4 MG, 1X/DAY
  9. FINASTERIDE. [Concomitant]
     Active Substance: FINASTERIDE
     Dosage: 5 MG, 1X/DAY
  10. VITAMIN D3 / MULTIVITAMIN [Concomitant]
     Dosage: 1 TABLETS, 1X/DAY
  11. CYMBALTA [Concomitant]
     Active Substance: DULOXETINE HYDROCHLORIDE
     Dosage: 30 MG, 1X/DAY
  12. GABAPENTIN. [Concomitant]
     Active Substance: GABAPENTIN
     Dosage: 600 MG, 4X/DAY
  13. LISINOPRIL. [Suspect]
     Active Substance: LISINOPRIL
     Dosage: 25 MG, 1X/DAY
     Dates: start: 201603, end: 201608
  14. CARVEDILOL. [Suspect]
     Active Substance: CARVEDILOL
     Dosage: 12.5 MG, 2X/DAY
     Dates: start: 201603
  15. WARFARIN [Concomitant]
     Active Substance: WARFARIN
     Dosage: 5 MG, 1X/DAY
  16. LISINOPRIL. [Suspect]
     Active Substance: LISINOPRIL
     Dosage: 12.5 UNK, UNK
     Dates: end: 201603
  17. ASPIRIN. [Concomitant]
     Active Substance: ASPIRIN
     Dosage: 162 MG, 1X/DAY
  18. DOXAZOSIN [Concomitant]
     Active Substance: DOXAZOSIN\DOXAZOSIN MESYLATE
     Dosage: 4 MG, 1X/DAY
  19. TIZANIDINE. [Concomitant]
     Active Substance: TIZANIDINE
     Dosage: 4 MG, UP TO 2X/DAY
  20. REGRANEX [Suspect]
     Active Substance: BECAPLERMIN
     Indication: DIABETIC ULCER
     Dosage: UNK, 2X/DAY
     Dates: start: 201606
  21. ADDERALL [Concomitant]
     Active Substance: AMPHETAMINE ASPARTATE\AMPHETAMINE SULFATE\DEXTROAMPHETAMINE SACCHARATE\DEXTROAMPHETAMINE SULFATE
     Dosage: 60 MG, 1X/DAY
  22. ISOSORBIDE MONONITRATE. [Concomitant]
     Active Substance: ISOSORBIDE MONONITRATE
     Dosage: 30 MG, 2X/DAY

REACTIONS (16)
  - Drug intolerance [Recovering/Resolving]
  - Fluid imbalance [Recovering/Resolving]
  - Renal artery stenosis [Unknown]
  - Off label use [Unknown]
  - Renal artery arteriosclerosis [Unknown]
  - Dehydration [Unknown]
  - Blood pressure decreased [Recovered/Resolved]
  - Benign prostatic hyperplasia [Unknown]
  - Acute kidney injury [Recovered/Resolved]
  - Mental status changes [Recovered/Resolved]
  - Chest discomfort [Recovering/Resolving]
  - Respiratory failure [Recovered/Resolved]
  - Sleep apnoea syndrome [Unknown]
  - Pickwickian syndrome [Unknown]
  - Thrombosis [Unknown]
  - Cardiac disorder [Recovering/Resolving]

NARRATIVE: CASE EVENT DATE: 2016
